FAERS Safety Report 9101879 (Version 1)
Quarter: 2013Q1

REPORT INFORMATION
  Report Type: Spontaneous
  Country: SE (occurrence: SE)
  Receive Date: 20130218
  Receipt Date: 20130218
  Transmission Date: 20140127
  Serious: Yes (Hospitalization)
  Sender: FDA-Public Use
  Company Number: PHHY2013SE013989

PATIENT
  Age: 44 Year
  Sex: Female

DRUGS (2)
  1. RIMACTANE [Suspect]
     Route: 048
     Dates: end: 201209
  2. CEFTAZIDIM [Concomitant]

REACTIONS (3)
  - Stomatitis [Unknown]
  - Pain [Unknown]
  - Pruritus [None]
